FAERS Safety Report 7586503-X (Version None)
Quarter: 2011Q3

REPORT INFORMATION
  Report Type: 
  Country: None (occurrence: None)
  Receive Date: 20110701
  Receipt Date: 20110609
  Transmission Date: 20111222
  Serious: Yes (Other)
  Sender: FDA-Public Use
  Company Number: US-BAYER-2010-002477

PATIENT
  Age: 22 Year
  Sex: Female
  Weight: 86.168 kg

DRUGS (5)
  1. YAZ [Suspect]
     Dosage: UNK
     Dates: start: 20080801, end: 20090301
  2. TRI-SPRINTEC [Concomitant]
     Dosage: UNK
     Dates: start: 20091210
  3. TRI-SPRINTEC [Concomitant]
     Dosage: UNK
     Dates: start: 20090307, end: 20090407
  4. YAZ [Suspect]
     Indication: CONTRACEPTION
     Dosage: UNK
     Route: 048
     Dates: start: 20080901, end: 20090501
  5. BUPROPION HYDROCHLORIDE [Concomitant]
     Indication: DEPRESSION
     Route: 048

REACTIONS (7)
  - GALLBLADDER DISORDER [None]
  - CHOLECYSTITIS CHRONIC [None]
  - PAIN [None]
  - DYSPEPSIA [None]
  - CHOLELITHIASIS [None]
  - PROCEDURAL PAIN [None]
  - EMOTIONAL DISTRESS [None]
